FAERS Safety Report 5148241-2 (Version None)
Quarter: 2006Q4

REPORT INFORMATION
  Report Type: 
  Country: None (occurrence: None)
  Receive Date: 20060918
  Receipt Date: 20060224
  Transmission Date: 20070319
  Serious: Yes (Other)
  Sender: FDA-Public Use
  Company Number: US-JNJFOC-20060206021

PATIENT
  Age: 34 Year
  Sex: Female
  Weight: 46.2669 kg

DRUGS (1)
  1. TOPAMAX [Suspect]
     Indication: MIGRAINE PROPHYLAXIS
     Dosage: 100 MG, 2 IN 1 DAY
     Dates: start: 20051201, end: 20060223

REACTIONS (6)
  - ABDOMINAL PAIN [None]
  - ARTHRALGIA [None]
  - BODY TEMPERATURE INCREASED [None]
  - FLANK PAIN [None]
  - INFLUENZA [None]
  - PAIN [None]
